FAERS Safety Report 24453431 (Version 2)
Quarter: 2024Q4

REPORT INFORMATION
  Report Type: Report from Study
  Country: US (occurrence: US)
  Receive Date: 20241017
  Receipt Date: 20241018
  Transmission Date: 20250115
  Serious: No
  Sender: ROCHE
  Company Number: US-ROCHE-3184927

PATIENT
  Age: 63 Year
  Sex: Female

DRUGS (29)
  1. RITUXAN [Suspect]
     Active Substance: RITUXIMAB
     Indication: Rheumatoid arthritis
     Route: 041
  2. ADDERALL [Concomitant]
     Active Substance: AMPHETAMINE ASPARTATE\AMPHETAMINE SULFATE\DEXTROAMPHETAMINE SACCHARATE\DEXTROAMPHETAMINE SULFATE
  3. AEROCHAMBER PLUS FLOW-VU [Concomitant]
  4. ALBUTEROL SULFATE [Concomitant]
     Active Substance: ALBUTEROL SULFATE
  5. BENZONATATE [Concomitant]
     Active Substance: BENZONATATE
  6. BENZONATATE [Concomitant]
     Active Substance: BENZONATATE
  7. CEQUA [Concomitant]
     Active Substance: CYCLOSPORINE
  8. CETIRIZINE [Concomitant]
     Active Substance: CETIRIZINE HYDROCHLORIDE
  9. CHOLESTYRAMINE LIGHT [Concomitant]
     Active Substance: CHOLESTYRAMINE
  10. CYCLOSPORINE [Concomitant]
     Active Substance: CYCLOSPORINE
  11. ERGOCALCIFEROL [Concomitant]
     Active Substance: ERGOCALCIFEROL
  12. ESCITALOPRAM [Concomitant]
     Active Substance: ESCITALOPRAM OXALATE
  13. ESTROGEL [Concomitant]
     Active Substance: ESTRADIOL
  14. ESZOPICLONE [Concomitant]
     Active Substance: ESZOPICLONE
  15. FLUTICASONE PROPIONATE [Concomitant]
     Active Substance: FLUTICASONE PROPIONATE
  16. HYDROXYCHLOROQUINE [Concomitant]
     Active Substance: HYDROXYCHLOROQUINE
  17. LEVOTHYROXINE [Concomitant]
     Active Substance: LEVOTHYROXINE
  18. MAGNESIUM [Concomitant]
     Active Substance: MAGNESIUM
  19. MAGNESIUM GLUCONATE [Concomitant]
     Active Substance: MAGNESIUM GLUCONATE
  20. METHOCARBAMOL [Concomitant]
     Active Substance: METHOCARBAMOL
  21. NEXIUM [Concomitant]
     Active Substance: ESOMEPRAZOLE MAGNESIUM
  22. NYSTATIN [Concomitant]
     Active Substance: NYSTATIN
  23. OZEMPIC [Concomitant]
     Active Substance: SEMAGLUTIDE
  24. PROGESTERONE [Concomitant]
     Active Substance: PROGESTERONE
  25. PROPRANOLOL [Concomitant]
     Active Substance: PROPRANOLOL HYDROCHLORIDE
  26. PULMICORT FLEXHALER [Concomitant]
     Active Substance: BUDESONIDE
  27. QUETIAPINE [Concomitant]
     Active Substance: QUETIAPINE
  28. TIROSINT [Concomitant]
     Active Substance: LEVOTHYROXINE SODIUM
  29. ZINC GLUCONATE [Concomitant]
     Active Substance: ZINC GLUCONATE

REACTIONS (2)
  - Off label use [Unknown]
  - No adverse event [Unknown]
